FAERS Safety Report 6225301-6 (Version None)
Quarter: 2009Q2

REPORT INFORMATION
  Report Type: 
  Country: None (occurrence: None)
  Receive Date: 20090612
  Receipt Date: 20090413
  Transmission Date: 20091009
  Serious: No
  Sender: FDA-Public Use
  Company Number: US-ABBOTT-09P-163-0568244-00

PATIENT
  Sex: Female
  Weight: 61.744 kg

DRUGS (4)
  1. HUMIRA [Suspect]
     Indication: RHEUMATOID ARTHRITIS
     Route: 058
     Dates: start: 20090410
  2. LANOXIN [Concomitant]
     Indication: CARDIAC FAILURE CONGESTIVE
  3. NEXIUM [Concomitant]
     Indication: GASTRIC DISORDER
  4. REGLAN [Concomitant]
     Indication: GASTRIC DISORDER

REACTIONS (2)
  - CHEST DISCOMFORT [None]
  - CHEST PAIN [None]
